FAERS Safety Report 12422271 (Version 2)
Quarter: 2016Q2

REPORT INFORMATION
  Report Type: Report from Study
  Country: ID (occurrence: ID)
  Receive Date: 20160601
  Receipt Date: 20160627
  Transmission Date: 20160815
  Serious: Yes (Other)
  Sender: FDA-Public Use
  Company Number: ID-ROCHE-1766723

PATIENT
  Age: 40 Year
  Sex: Female

DRUGS (2)
  1. VISANNE [Concomitant]
     Active Substance: DIENOGEST
  2. ACTEMRA [Suspect]
     Active Substance: TOCILIZUMAB
     Indication: RHEUMATOID ARTHRITIS
     Route: 065

REACTIONS (2)
  - Cyst [Recovering/Resolving]
  - Uterine leiomyoma [Recovering/Resolving]
